FAERS Safety Report 9442882 (Version 2)
Quarter: 2013Q3

REPORT INFORMATION
  Report Type: Spontaneous
  Country: IT (occurrence: IT)
  Receive Date: 20130806
  Receipt Date: 20130812
  Transmission Date: 20140515
  Serious: Yes (Other)
  Sender: FDA-Public Use
  Company Number: IT-TEVA-421415ISR

PATIENT
  Age: 32 Year
  Sex: Female

DRUGS (1)
  1. DICLOFENAC [Suspect]
     Indication: SCIATICA
     Dosage: 1 DOSAGE FORMS DAILY;
     Route: 048
     Dates: start: 20130115, end: 20130119

REACTIONS (2)
  - Ear swelling [Recovering/Resolving]
  - Ear pruritus [Recovering/Resolving]
